FAERS Safety Report 19785058 (Version 1)
Quarter: 2021Q3

REPORT INFORMATION
  Report Type: Spontaneous
  Country: US (occurrence: US)
  Receive Date: 20210903
  Receipt Date: 20210903
  Transmission Date: 20211014
  Serious: No
  Sender: FDA-Public Use
  Company Number: None

PATIENT
  Age: 38 Year
  Sex: Male

DRUGS (1)
  1. REGEN?COV [Suspect]
     Active Substance: CASIRIVIMAB\IMDEVIMAB
     Indication: COVID-19
     Dosage: ?          OTHER FREQUENCY:ONE TIME;?
     Route: 041
     Dates: start: 20210830, end: 20210830

REACTIONS (3)
  - Loss of consciousness [None]
  - Hyperhidrosis [None]
  - Pruritus [None]

NARRATIVE: CASE EVENT DATE: 20210830
